FAERS Safety Report 9852707 (Version 2)
Quarter: 2014Q1

REPORT INFORMATION
  Report Type: Spontaneous
  Country: US (occurrence: US)
  Receive Date: 20140129
  Receipt Date: 20140129
  Transmission Date: 20141002
  Serious: Yes (Other)
  Sender: FDA-Public Use
  Company Number: US-ACORDA-ACO_23612_2010

PATIENT
  Age: 44 Year
  Sex: Male

DRUGS (2)
  1. AMPYRA [Suspect]
     Indication: MULTIPLE SCLEROSIS
     Dosage: DF
     Dates: start: 201005, end: 20100611
  2. TYSABRI [Suspect]
     Indication: MULTIPLE SCLEROSIS
     Dosage: DF
     Dates: start: 20071130

REACTIONS (2)
  - Convulsion [Unknown]
  - Syncope [Unknown]
